FAERS Safety Report 18651981 (Version 1)
Quarter: 2020Q4

REPORT INFORMATION
  Report Type: Spontaneous
  Country: AU (occurrence: AU)
  Receive Date: 20201223
  Receipt Date: 20201223
  Transmission Date: 20210114
  Serious: Yes (Other)
  Sender: FDA-Public Use
  Company Number: AU-ROCHE-2737563

PATIENT
  Sex: Female
  Weight: 90 kg

DRUGS (3)
  1. PREDNISOLONE. [Concomitant]
     Active Substance: PREDNISOLONE
     Indication: GIANT CELL ARTERITIS
     Dosage: FOR 2 MONTHS. LAST PREDNISOLONE 30-NOV-2020
  2. ACTEMRA [Suspect]
     Active Substance: TOCILIZUMAB
     Indication: GIANT CELL ARTERITIS
     Route: 065
  3. ACTEMRA [Suspect]
     Active Substance: TOCILIZUMAB
     Indication: POLYMYALGIA RHEUMATICA

REACTIONS (8)
  - Hepatic steatosis [Unknown]
  - Steroid diabetes [Unknown]
  - Intentional product use issue [Unknown]
  - Gastritis [Unknown]
  - Blood cholesterol increased [Unknown]
  - Hypertension [Unknown]
  - Off label use [Unknown]
  - Splenomegaly [Unknown]
